FAERS Safety Report 23457547 (Version 2)
Quarter: 2024Q1

REPORT INFORMATION
  Report Type: Spontaneous
  Country: US (occurrence: US)
  Receive Date: 20240130
  Receipt Date: 20240202
  Transmission Date: 20240410
  Serious: No
  Sender: FDA-Public Use
  Company Number: US-BAYER-2024A017039

PATIENT
  Age: 55 Year
  Sex: Female

DRUGS (4)
  1. ADEMPAS [Suspect]
     Active Substance: RIOCIGUAT
     Indication: Product used for unknown indication
     Dosage: UNK
  2. MACITENTAN [Suspect]
     Active Substance: MACITENTAN
     Indication: Hypertension
     Dosage: 10 MG
     Route: 048
     Dates: start: 20231212
  3. MACITENTAN [Suspect]
     Active Substance: MACITENTAN
     Indication: Hypertension
     Dosage: 10 MG, QD
     Route: 048
     Dates: start: 20231213
  4. MACITENTAN [Suspect]
     Active Substance: MACITENTAN
     Indication: Hypertension
     Dosage: 10 MG, QD
     Route: 048
     Dates: start: 20231221

REACTIONS (18)
  - Headache [Recovered/Resolved]
  - Gastrointestinal disorder [Recovered/Resolved]
  - Abdominal pain [Recovered/Resolved]
  - Chest pain [Recovered/Resolved]
  - Sinus disorder [Not Recovered/Not Resolved]
  - Sinus pain [None]
  - Nasal congestion [Recovering/Resolving]
  - Throat irritation [Not Recovered/Not Resolved]
  - Influenza like illness [Not Recovered/Not Resolved]
  - Fatigue [Not Recovered/Not Resolved]
  - Insomnia [Unknown]
  - Pruritus [Recovered/Resolved]
  - Flushing [Recovered/Resolved]
  - Ocular hyperaemia [Recovering/Resolving]
  - Oropharyngeal pain [None]
  - Face oedema [Not Recovered/Not Resolved]
  - Eye irritation [Recovering/Resolving]
  - Oedema peripheral [None]

NARRATIVE: CASE EVENT DATE: 20231212
